FAERS Safety Report 6707629-6 (Version None)
Quarter: 2010Q2

REPORT INFORMATION
  Report Type: 
  Country: None (occurrence: None)
  Receive Date: 20100428
  Receipt Date: 20100420
  Transmission Date: 20101027
  Serious: Yes (Hospitalization)
  Sender: FDA-Public Use
  Company Number: 10-000456

PATIENT
  Age: 83 Year
  Sex: Female
  Weight: 57.1 kg

DRUGS (13)
  1. ESTRACE [Suspect]
     Indication: HORMONE REPLACEMENT THERAPY
     Dosage: 1 GM, MONDAY, WEDNESDAY, FRIDAY, VAGINAL
     Route: 067
     Dates: start: 20040101, end: 20100405
  2. ESTRACE [Suspect]
     Indication: VULVOVAGINAL PAIN
     Dosage: 1 GM, MONDAY, WEDNESDAY, FRIDAY, VAGINAL
     Route: 067
     Dates: start: 20040101, end: 20100405
  3. CALCIUM (CALCIUM GLUBIONATE) [Concomitant]
  4. LOVASTATIN [Concomitant]
  5. OMEPRAZOLE [Concomitant]
  6. FOSAMAX [Concomitant]
  7. COUMADIN (COUMARIN) [Concomitant]
  8. METOPROLOL TARTRATE [Concomitant]
  9. ASPIRIN [Concomitant]
  10. VITAMIN D [Concomitant]
  11. XALATAN [Concomitant]
  12. RESTASIS (CICLOSPORIN) [Concomitant]
  13. PRILOSEC (OMEPRAZOLE) [Concomitant]

REACTIONS (7)
  - ATRIOVENTRICULAR BLOCK [None]
  - CARDIAC ARREST [None]
  - CYSTITIS [None]
  - HEAD INJURY [None]
  - LOSS OF CONSCIOUSNESS [None]
  - VAGINITIS BACTERIAL [None]
  - VULVOVAGINAL MYCOTIC INFECTION [None]
